FAERS Safety Report 7433301-3 (Version None)
Quarter: 2011Q2

REPORT INFORMATION
  Report Type: 
  Country: None (occurrence: None)
  Receive Date: 20110422
  Receipt Date: 20110412
  Transmission Date: 20111010
  Serious: No
  Sender: FDA-Public Use
  Company Number: US-ELI_LILLY_AND_COMPANY-US201007004194

PATIENT
  Sex: Female

DRUGS (8)
  1. FORTEO [Suspect]
     Dosage: 20 UG, QD
     Route: 058
  2. FORTEO [Suspect]
     Indication: OSTEOPOROSIS
     Dosage: 20 UG, DAILY (1/D)
     Route: 058
     Dates: start: 20100101, end: 20110201
  3. CALCIUM [Concomitant]
  4. LISINOPRIL [Concomitant]
  5. CARDIZEM [Concomitant]
  6. FORTEO [Suspect]
     Dosage: 20 UG, DAILY (1/D)
     Route: 058
     Dates: start: 20110201
  7. SYNTHROID [Concomitant]
  8. VITAMIN D [Concomitant]

REACTIONS (2)
  - MUSCLE SPASMS [None]
  - BACK PAIN [None]
